FAERS Safety Report 7411855-0 (Version None)
Quarter: 2011Q2

REPORT INFORMATION
  Report Type: 
  Country: None (occurrence: None)
  Receive Date: 20110413
  Receipt Date: 20110412
  Transmission Date: 20111010
  Serious: Yes (Hospitalization)
  Sender: FDA-Public Use
  Company Number: US-BAYER-200924626NA

PATIENT
  Age: 39 Year
  Sex: Female

DRUGS (5)
  1. BETASERON [Suspect]
     Route: 058
  2. BETASERON [Suspect]
     Indication: MULTIPLE SCLEROSIS
     Dosage: BETAJECT
     Route: 058
     Dates: start: 20090422
  3. UNKNOWN [Concomitant]
     Indication: HYPERTENSION
  4. BETASERON [Suspect]
     Route: 058
  5. UNKNOWN [Concomitant]
     Indication: ANTIDEPRESSANT THERAPY

REACTIONS (11)
  - MULTIPLE SCLEROSIS [None]
  - BACK PAIN [None]
  - HOSPITALISATION [None]
  - BLOOD GLUCOSE INCREASED [None]
  - MULTIPLE SCLEROSIS RELAPSE [None]
  - MOTOR DYSFUNCTION [None]
  - INJECTION SITE HAEMATOMA [None]
  - MUSCULAR WEAKNESS [None]
  - FOOT DEFORMITY [None]
  - MEMORY IMPAIRMENT [None]
  - GAIT DISTURBANCE [None]
